FAERS Safety Report 10027564 (Version 2)
Quarter: 2014Q1

REPORT INFORMATION
  Report Type: Spontaneous
  Country: IT (occurrence: IT)
  Receive Date: 20140321
  Receipt Date: 20140321
  Transmission Date: 20141002
  Serious: Yes (Hospitalization)
  Sender: FDA-Public Use
  Company Number: PHHY2014IT002119

PATIENT
  Sex: Male

DRUGS (5)
  1. OLANZAPINE [Suspect]
     Indication: INTENTIONAL SELF-INJURY
     Dosage: 5 MG, ONCE/SINGLE
     Route: 048
     Dates: start: 20131220, end: 20131220
  2. ALCOHOL [Suspect]
     Indication: INTENTIONAL SELF-INJURY
  3. LENDORMIN [Suspect]
     Indication: INTENTIONAL SELF-INJURY
     Dosage: 0.5 MG, ONCE/SINGLE
     Route: 048
     Dates: start: 20131220, end: 20131220
  4. XANAX [Suspect]
     Indication: INTENTIONAL SELF-INJURY
     Dosage: 1 MG, ONCE/SINGLE
     Route: 048
     Dates: start: 20131220, end: 20131220
  5. EFEXOR [Suspect]
     Indication: INTENTIONAL SELF-INJURY
     Dosage: 150 MG, ONCE/SINGLE
     Route: 048
     Dates: start: 20131220, end: 20131220

REACTIONS (4)
  - Headache [Recovering/Resolving]
  - Mydriasis [Recovering/Resolving]
  - Sopor [Recovering/Resolving]
  - Drug abuse [Recovering/Resolving]
